FAERS Safety Report 5969708-0 (Version None)
Quarter: 2008Q4

REPORT INFORMATION
  Report Type: 
  Country: None (occurrence: None)
  Receive Date: 20081126
  Receipt Date: 20081121
  Transmission Date: 20090506
  Serious: Yes (Hospitalization, Other)
  Sender: FDA-Public Use
  Company Number: US-GILEAD-2008-0018948

PATIENT
  Sex: Female
  Weight: 127.12 kg

DRUGS (12)
  1. LETAIRIS [Suspect]
     Indication: PULMONARY ARTERIAL HYPERTENSION
     Route: 048
     Dates: start: 20081007
  2. REVATIO [Concomitant]
  3. PRAZSOIN HCL [Concomitant]
  4. GLUCOTROL XL [Concomitant]
  5. FUROSEMIDE [Concomitant]
  6. COZAAR [Concomitant]
  7. METOPROLOL TARTRATE [Concomitant]
  8. NORVASC [Concomitant]
  9. CRESTOR [Concomitant]
  10. ACTOS [Concomitant]
  11. PLAVIX [Concomitant]
  12. POTASSIUM CHLORIDE [Concomitant]

REACTIONS (2)
  - CARDIAC FAILURE CONGESTIVE [None]
  - NO THERAPEUTIC RESPONSE [None]
